FAERS Safety Report 5010868-6 (Version None)
Quarter: 2006Q2

REPORT INFORMATION
  Report Type: 
  Country: None (occurrence: None)
  Receive Date: 20060525
  Receipt Date: 20060518
  Transmission Date: 20061013
  Serious: Yes (Death, Life-Threatening)
  Sender: FDA-Public Use
  Company Number: JP-JPN-A200601625

PATIENT
  Age: 65 Year
  Sex: Female

DRUGS (4)
  1. PAXIL [Suspect]
     Indication: DEPRESSION
     Dosage: 10MG PER DAY
     Route: 048
     Dates: start: 20060403, end: 20060408
  2. SOLANAX [Concomitant]
     Route: 048
  3. LENDORMIN [Concomitant]
     Route: 048
  4. DESYREL [Concomitant]
     Route: 048

REACTIONS (1)
  - COMPLETED SUICIDE [None]
